FAERS Safety Report 9381602 (Version 5)
Quarter: 2014Q3

REPORT INFORMATION
  Report Type: Spontaneous
  Country: BR (occurrence: BR)
  Receive Date: 20130703
  Receipt Date: 20140728
  Transmission Date: 20150326
  Serious: Yes (Other)
  Sender: FDA-Public Use
  Company Number: BR-PFIZER INC-2013195151

PATIENT
  Age: 49 Year
  Sex: Male

DRUGS (3)
  1. LISADOR [Concomitant]
     Active Substance: DIPYRONE\PROMETHAZINE HYDROCHLORIDE
     Dosage: UNSPECIFIED DOSE, EVERY 8 HOURS
  2. SUTENT [Suspect]
     Active Substance: SUNITINIB MALATE
     Indication: RENAL CELL CARCINOMA
     Dosage: 50 MG, 1X/DAY, CYCLIC (4X2)
     Route: 048
     Dates: start: 20130424
  3. CODEINE [Concomitant]
     Active Substance: CODEINE
     Dosage: UNSPECIFIED DOSE, EVERY 12 HOURS

REACTIONS (6)
  - Tumour pain [Unknown]
  - Glossodynia [Unknown]
  - Ageusia [Unknown]
  - Oral pain [Unknown]
  - Epistaxis [Unknown]
  - Pain in extremity [Unknown]

NARRATIVE: CASE EVENT DATE: 2013
